FAERS Safety Report 5302959-7 (Version None)
Quarter: 2007Q2

REPORT INFORMATION
  Report Type: 
  Country: None (occurrence: None)
  Receive Date: 20070417
  Receipt Date: 20070417
  Transmission Date: 20071010
  Serious: Yes (Death)
  Sender: FDA-Public Use
  Company Number: None

PATIENT
  Sex: Female
  Weight: 99.7913 kg

DRUGS (1)
  1. VELCADE [Suspect]
     Indication: LUNG NEOPLASM MALIGNANT
     Dosage: 1.7 MG 2 X WEEK IV BOLUS
     Route: 040
     Dates: start: 20070220, end: 20070316

REACTIONS (1)
  - RESPIRATORY ARREST [None]
